FAERS Safety Report 6398013-6 (Version None)
Quarter: 2009Q4

REPORT INFORMATION
  Report Type: 
  Country: None (occurrence: None)
  Receive Date: 20091013
  Receipt Date: 20091008
  Transmission Date: 20100525
  Serious: Yes (Hospitalization)
  Sender: FDA-Public Use
  Company Number: DE-ROCHE-657395

PATIENT
  Sex: Female
  Weight: 51 kg

DRUGS (2)
  1. CAPECITABINE [Suspect]
     Dosage: 4TH CYCLE DAY 1 AT ONSET OF EVENTS
     Route: 048
     Dates: start: 20090601
  2. OXALIPLATIN [Suspect]
     Dosage: 4TH CYCLE DAY 1 AT ONSET OF EVENTS
     Route: 042
     Dates: start: 20090601

REACTIONS (4)
  - MUSCLE SPASMS [None]
  - NAUSEA [None]
  - THROMBOCYTOPENIA [None]
  - UNRESPONSIVE TO STIMULI [None]
